FAERS Safety Report 6635477-4 (Version None)
Quarter: 2010Q1

REPORT INFORMATION
  Report Type: 
  Country: None (occurrence: None)
  Receive Date: 20100315
  Receipt Date: 20090813
  Transmission Date: 20100710
  Serious: No
  Sender: FDA-Public Use
  Company Number: US-ABBOTT-09P-163-0592100-00

PATIENT
  Sex: Male

DRUGS (2)
  1. DEPAKOTE [Suspect]
     Indication: MIGRAINE
     Dates: start: 20060101
  2. DEPAKOTE [Suspect]
     Indication: AFFECTIVE DISORDER

REACTIONS (3)
  - FEELING ABNORMAL [None]
  - FEELING DRUNK [None]
  - VISUAL IMPAIRMENT [None]
